FAERS Safety Report 19985969 (Version 2)
Quarter: 2022Q4

REPORT INFORMATION
  Report Type: Spontaneous
  Country: CA (occurrence: None)
  Receive Date: 20211022
  Receipt Date: 20221109
  Transmission Date: 20230112
  Serious: Yes (Hospitalization, Other)
  Sender: FDA-Public Use
  Company Number: 2021A774784

PATIENT
  Age: 55 Year
  Sex: Male

DRUGS (11)
  1. QUETIAPINE FUMARATE [Suspect]
     Active Substance: QUETIAPINE FUMARATE
     Indication: Product used for unknown indication
     Route: 048
  2. QUETIAPINE FUMARATE [Suspect]
     Active Substance: QUETIAPINE FUMARATE
     Indication: Antifungal treatment
     Route: 048
  3. PIPERACILLIN SODIUM\TAZOBACTAM SODIUM [Suspect]
     Active Substance: PIPERACILLIN SODIUM\TAZOBACTAM SODIUM
     Indication: Product used for unknown indication
     Route: 065
  4. PIPERACILLIN SODIUM\TAZOBACTAM SODIUM [Suspect]
     Active Substance: PIPERACILLIN SODIUM\TAZOBACTAM SODIUM
     Indication: Antifungal treatment
     Route: 065
  5. CIPROFLOXACIN [Suspect]
     Active Substance: CIPROFLOXACIN
     Indication: Product used for unknown indication
     Route: 065
  6. CIPROFLOXACIN [Suspect]
     Active Substance: CIPROFLOXACIN
     Indication: Antifungal treatment
     Route: 065
  7. SULFAMETHOXAZOLE\TRIMETHOPRIM [Suspect]
     Active Substance: SULFAMETHOXAZOLE\TRIMETHOPRIM
     Indication: Product used for unknown indication
     Route: 065
  8. COTRIMOXAZOLE [Suspect]
     Active Substance: SULFAMETHOXAZOLE\TRIMETHOPRIM
     Indication: Product used for unknown indication
     Route: 048
  9. ISONIAZID\PYRIDOXINE\SULFAMETHOXAZOLE\TRIMETHOPRIM [Suspect]
     Active Substance: ISONIAZID\PYRIDOXINE\SULFAMETHOXAZOLE\TRIMETHOPRIM
  10. FLUCONAZOLE [Suspect]
     Active Substance: FLUCONAZOLE
  11. NYSTATIN [Suspect]
     Active Substance: NYSTATIN

REACTIONS (5)
  - Taste disorder [Unknown]
  - Trichoglossia [Unknown]
  - Emotional distress [Unknown]
  - Dry mouth [Unknown]
  - Therapy non-responder [Unknown]
